FAERS Safety Report 10309284 (Version 1)
Quarter: 2014Q3

REPORT INFORMATION
  Report Type: Report from Study
  Country: US (occurrence: US)
  Receive Date: 20140716
  Receipt Date: 20140716
  Transmission Date: 20150326
  Serious: Yes (Other)
  Sender: FDA-Public Use
  Company Number: US-BAXTER-2014BAX039882

PATIENT
  Age: 59 Year
  Sex: Male

DRUGS (6)
  1. INTERLEUKIN-1 ALPHA [Suspect]
     Active Substance: INTERLEUKIN-1.ALPHA.
     Indication: NEOPLASM PROGRESSION
     Route: 042
  2. NORMAL SALINE [Suspect]
     Active Substance: SODIUM CHLORIDE
     Indication: PROPHYLAXIS
     Route: 065
  3. INTERLEUKIN-1 ALPHA [Suspect]
     Active Substance: INTERLEUKIN-1.ALPHA.
     Route: 042
  4. ACETAMINOPHEN. [Suspect]
     Active Substance: ACETAMINOPHEN
     Indication: ANTIPYRESIS
     Route: 065
  5. MEPERIDINE [Suspect]
     Active Substance: MEPERIDINE
     Indication: CHILLS
     Dosage: 25-50MG
     Route: 042
  6. CYCLOPHOSPHAMIDE FOR INJECTION, USP [Suspect]
     Active Substance: CYCLOPHOSPHAMIDE
     Indication: NEOPLASM PROGRESSION
     Dosage: 1.5 GM/M2
     Route: 042

REACTIONS (2)
  - Metastatic neoplasm [Unknown]
  - Blood bilirubin increased [Unknown]
